FAERS Safety Report 9870234 (Version 1)
Quarter: 2014Q1

REPORT INFORMATION
  Report Type: Report from Study
  Country: BR (occurrence: BR)
  Receive Date: 20140205
  Receipt Date: 20140205
  Transmission Date: 20141002
  Serious: Yes (Hospitalization)
  Sender: FDA-Public Use
  Company Number: BR-US-EMD SERONO, INC.-7264802

PATIENT
  Age: 23 Year
  Sex: Female

DRUGS (3)
  1. REBIF [Suspect]
     Indication: MULTIPLE SCLEROSIS
     Dates: start: 20111215, end: 20130604
  2. REBIF [Suspect]
     Dates: start: 20130802, end: 20130923
  3. REBIF [Suspect]
     Dates: start: 20131014, end: 20131115

REACTIONS (2)
  - Thyroid cancer [Unknown]
  - Metastases to lung [Not Recovered/Not Resolved]
